FAERS Safety Report 17479428 (Version 2)
Quarter: 2020Q3

REPORT INFORMATION
  Report Type: Report from Study
  Country: DK (occurrence: DK)
  Receive Date: 20200228
  Receipt Date: 20200818
  Transmission Date: 20201102
  Serious: Yes (Life-Threatening, Hospitalization, Other)
  Sender: FDA-Public Use
  Company Number: DK-MYLANLABS-2020M1022671

PATIENT
  Age: 55 Year
  Sex: Female
  Weight: 84 kg

DRUGS (13)
  1. PALBOCICLIB [Suspect]
     Active Substance: PALBOCICLIB
     Indication: ENDOMETRIAL CANCER RECURRENT
     Route: 065
  2. LERCASTAD [Concomitant]
     Indication: HYPERTENSION
     Dosage: UNK
     Route: 065
     Dates: start: 20181011
  3. LERCASTAD [Concomitant]
     Dosage: UNK
     Route: 065
     Dates: start: 20181108
  4. CENTYL [Concomitant]
     Active Substance: BENDROFLUMETHIAZIDE
     Indication: HYPERTENSION
     Dosage: UNK
     Route: 065
     Dates: start: 20181011
  5. XARELTO [Concomitant]
     Active Substance: RIVAROXABAN
     Indication: ANTICOAGULANT THERAPY
     Dosage: UNK
     Route: 065
     Dates: start: 20200501
  6. ATORVASTATIN                       /01326102/ [Concomitant]
     Active Substance: ATORVASTATIN
     Indication: BLOOD CHOLESTEROL INCREASED
     Dosage: UNK
     Route: 065
     Dates: start: 20200104
  7. RAMIPRIL. [Concomitant]
     Active Substance: RAMIPRIL
     Indication: HYPERTENSION
     Dosage: UNK
     Route: 065
     Dates: start: 20181011
  8. PAMOL [Concomitant]
     Active Substance: ACETAMINOPHEN
     Indication: PAIN
     Dosage: UNK
     Route: 065
     Dates: start: 20200501
  9. DIGOXIN. [Concomitant]
     Active Substance: DIGOXIN
     Indication: PRODUCT USED FOR UNKNOWN INDICATION
     Dosage: 500+250+250/MICROGRAM
     Route: 065
  10. LETROZOLE. [Suspect]
     Active Substance: LETROZOLE
     Indication: ENDOMETRIAL CANCER RECURRENT
     Dosage: 2.5 MG, QD
     Route: 048
     Dates: start: 20181011, end: 20200106
  11. TRADOLAN [Concomitant]
     Active Substance: TRAMADOL
     Indication: PAIN
     Dosage: UNK
     Route: 065
     Dates: start: 20200501
  12. CLOPIDOGREL [Concomitant]
     Active Substance: CLOPIDOGREL BISULFATE
     Indication: PROPHYLAXIS
     Dosage: UNK
     Route: 065
     Dates: start: 20200104, end: 20200708
  13. LETROZOLE. [Suspect]
     Active Substance: LETROZOLE
     Dosage: UNK
     Route: 065
     Dates: start: 20200602

REACTIONS (14)
  - Mitral valve disease [Recovered/Resolved with Sequelae]
  - Heart rate increased [Unknown]
  - Product use in unapproved indication [Unknown]
  - Thrombosis [Unknown]
  - Low density lipoprotein increased [Unknown]
  - Pulmonary embolism [Unknown]
  - Oedema peripheral [Unknown]
  - Paresis [Unknown]
  - Heart rate irregular [Unknown]
  - Dyspnoea [Unknown]
  - Facial paralysis [Unknown]
  - Blood pressure increased [Unknown]
  - Cerebrovascular accident [Recovered/Resolved]
  - Blood cholesterol increased [Unknown]

NARRATIVE: CASE EVENT DATE: 20200102
